FAERS Safety Report 7792421-4 (Version None)
Quarter: 2011Q4

REPORT INFORMATION
  Report Type: 
  Country: None (occurrence: None)
  Receive Date: 20111003
  Receipt Date: 20110927
  Transmission Date: 20120403
  Serious: Yes (Hospitalization)
  Sender: FDA-Public Use
  Company Number: AU-AMGEN-AUSSP2011050246

PATIENT
  Age: 68 Year
  Sex: Male

DRUGS (5)
  1. NEUPOGEN [Concomitant]
     Dosage: UNK
     Dates: start: 20110201, end: 20110201
  2. NEUPOGEN [Suspect]
     Indication: PRODUCT USED FOR UNKNOWN INDICATION
     Dosage: 960 MUG, QD
     Dates: end: 20110413
  3. MOZOBIL [Suspect]
     Dosage: 20 MG, QD
     Dates: start: 20110411, end: 20110412
  4. STEMGEN [Suspect]
     Dosage: 1650 MG, QD
     Dates: start: 20110411, end: 20110412
  5. PLERIXAFOR [Concomitant]
     Dosage: UNK
     Dates: start: 20110201, end: 20110201

REACTIONS (2)
  - RENAL TUBULAR NECROSIS [None]
  - RENAL FAILURE ACUTE [None]
